FAERS Safety Report 20943075 (Version 2)
Quarter: 2023Q2

REPORT INFORMATION
  Report Type: Other
  Country: GR (occurrence: GR)
  Receive Date: 20220610
  Receipt Date: 20230403
  Transmission Date: 20230722
  Serious: Yes (Other)
  Sender: FDA-Public Use
  Company Number: GR-002147023-NVSC2022GR130572

PATIENT
  Age: 74 Year
  Sex: Female

DRUGS (13)
  1. RANIBIZUMAB [Suspect]
     Active Substance: RANIBIZUMAB
     Indication: Choroidal neovascularisation
     Dosage: 2 INJECTIONS
     Route: 050
     Dates: start: 2013
  2. RANIBIZUMAB [Suspect]
     Active Substance: RANIBIZUMAB
     Dosage: 10 INJECTIONS
     Route: 050
     Dates: start: 2014
  3. RANIBIZUMAB [Suspect]
     Active Substance: RANIBIZUMAB
     Dosage: 5 INJECTIONS
     Route: 050
     Dates: start: 2015
  4. RANIBIZUMAB [Suspect]
     Active Substance: RANIBIZUMAB
     Dosage: 3 INJECTIONS
     Route: 050
     Dates: start: 2016
  5. RANIBIZUMAB [Suspect]
     Active Substance: RANIBIZUMAB
     Dosage: 5 INJECTIONS
     Route: 050
     Dates: start: 2017
  6. RANIBIZUMAB [Suspect]
     Active Substance: RANIBIZUMAB
     Dosage: 7 INJECTIONS
     Route: 050
     Dates: start: 2018
  7. RANIBIZUMAB [Suspect]
     Active Substance: RANIBIZUMAB
     Dosage: 10 INJECTIONS
     Route: 050
     Dates: start: 2019
  8. RANIBIZUMAB [Suspect]
     Active Substance: RANIBIZUMAB
     Dosage: 10 INJECTIONS
     Route: 050
     Dates: start: 2020
  9. RANIBIZUMAB [Suspect]
     Active Substance: RANIBIZUMAB
     Dosage: 13 INJECTIONS
     Route: 050
     Dates: start: 2021
  10. RANIBIZUMAB [Suspect]
     Active Substance: RANIBIZUMAB
     Dosage: 2 INJECTIONS IN 2022
     Route: 050
  11. BROLUCIZUMAB [Suspect]
     Active Substance: BROLUCIZUMAB
     Indication: Choroidal neovascularisation
     Dosage: 1 DOSAGE FORM (1 INJECTION IN 2022)
     Route: 065
  12. AFLIBERCEPT [Suspect]
     Active Substance: AFLIBERCEPT
     Indication: Choroidal neovascularisation
     Dosage: 1 DOSAGE FORM (1 INJECTION)
     Route: 031
     Dates: start: 2016
  13. AFLIBERCEPT [Suspect]
     Active Substance: AFLIBERCEPT
     Dosage: 4 DOSAGE FORM (4 INJECTIONS)
     Route: 031
     Dates: start: 2017, end: 2017

REACTIONS (1)
  - Visual acuity reduced [Unknown]
